FAERS Safety Report 4995171-2 (Version None)
Quarter: 2006Q2

REPORT INFORMATION
  Report Type: 
  Country: None (occurrence: None)
  Receive Date: 20060503
  Receipt Date: 20060413
  Transmission Date: 20061013
  Serious: Yes (Other)
  Sender: FDA-Public Use
  Company Number: US200604002231

PATIENT
  Age: 47 Year
  Sex: Female

DRUGS (1)
  1. HUMULIN 70/30 [Suspect]
     Indication: DIABETES MELLITUS NON-INSULIN-DEPENDENT
     Dosage: SEE IMAGE
     Dates: start: 19950101

REACTIONS (5)
  - BLOOD GLUCOSE INCREASED [None]
  - PARAESTHESIA [None]
  - POLLAKIURIA [None]
  - SPINAL CORD INJURY [None]
  - THIRST [None]
